FAERS Safety Report 19913965 (Version 1)
Quarter: 2021Q4

REPORT INFORMATION
  Report Type: Spontaneous
  Country: US (occurrence: US)
  Receive Date: 20211004
  Receipt Date: 20211004
  Transmission Date: 20220303
  Serious: Yes (Other)
  Sender: FDA-Public Use
  Company Number: US-ALLERGAN-2133627US

PATIENT
  Sex: Female

DRUGS (12)
  1. NAMENDA [Suspect]
     Active Substance: MEMANTINE HYDROCHLORIDE
     Indication: Product used for unknown indication
     Dosage: 28 MG, QD
     Route: 048
  2. NAMENDA [Suspect]
     Active Substance: MEMANTINE HYDROCHLORIDE
     Dosage: 21 MG, QD
     Route: 048
  3. NAMENDA [Suspect]
     Active Substance: MEMANTINE HYDROCHLORIDE
     Dosage: 14 MG, QD
     Route: 048
  4. NAMENDA [Suspect]
     Active Substance: MEMANTINE HYDROCHLORIDE
     Dosage: 7 MG, QD
     Route: 048
     Dates: start: 201603, end: 2016
  5. TERIFLUNOMIDE [Suspect]
     Active Substance: TERIFLUNOMIDE
     Indication: Multiple sclerosis
     Dosage: 7 MG, QD
     Route: 048
     Dates: start: 20160420
  6. TERIFLUNOMIDE [Suspect]
     Active Substance: TERIFLUNOMIDE
     Dosage: 14 MG, QD
     Route: 048
     Dates: start: 20160415, end: 20160418
  7. GLUCOSE OXIDASE;LACTOPEROXIDASE [Concomitant]
  8. KEPPRA [Concomitant]
     Active Substance: LEVETIRACETAM
     Indication: Sleep disorder
     Dosage: 750 MG, QD
  9. KLONOPIN [Concomitant]
     Active Substance: CLONAZEPAM
     Dosage: UNK QD
  10. UNSPECIFIED INGREDIENT [Concomitant]
     Active Substance: UNSPECIFIED INGREDIENT
  11. ERGOCALCIFEROL [Concomitant]
     Active Substance: ERGOCALCIFEROL
     Dosage: UNK
  12. MODAFINIL [Concomitant]
     Active Substance: MODAFINIL
     Dosage: 200 MG
     Route: 048

REACTIONS (14)
  - Cerebrovascular accident [Unknown]
  - Hyperhidrosis [Not Recovered/Not Resolved]
  - Extrapyramidal disorder [Not Recovered/Not Resolved]
  - Dry mouth [Not Recovered/Not Resolved]
  - Insomnia [Not Recovered/Not Resolved]
  - Pressure of speech [Not Recovered/Not Resolved]
  - Tearfulness [Not Recovered/Not Resolved]
  - Feeling abnormal [Not Recovered/Not Resolved]
  - Trismus [Unknown]
  - Muscle tightness [Not Recovered/Not Resolved]
  - Tremor [Not Recovered/Not Resolved]
  - Discomfort [Unknown]
  - Arthralgia [Not Recovered/Not Resolved]
  - Pyrexia [Unknown]

NARRATIVE: CASE EVENT DATE: 20160101
